FAERS Safety Report 10131314 (Version 1)
Quarter: 2014Q2

REPORT INFORMATION
  Report Type: Spontaneous
  Country: US (occurrence: US)
  Receive Date: 20140428
  Receipt Date: 20140428
  Transmission Date: 20141212
  Serious: No
  Sender: FDA-Public Use
  Company Number: US-GLAXOSMITHKLINE-A1058945A

PATIENT
  Age: 38 Year
  Sex: Male
  Weight: 116.8 kg

DRUGS (9)
  1. ZOFRAN [Suspect]
     Indication: NAUSEA
     Route: 065
     Dates: start: 201401
  2. SUTENT [Concomitant]
     Dosage: 50MG PER DAY
  3. DECADRON [Concomitant]
  4. LISINOPRIL [Concomitant]
  5. AXIRON [Concomitant]
  6. DULCOLAX [Concomitant]
  7. MOUTHWASH [Concomitant]
     Indication: CANDIDA INFECTION
  8. HYDROCODONE [Concomitant]
     Indication: HEADACHE
  9. PRILOSEC [Concomitant]

REACTIONS (1)
  - Therapeutic response decreased [Unknown]
